FAERS Safety Report 7674732-6 (Version None)
Quarter: 2011Q3

REPORT INFORMATION
  Report Type: 
  Country: None (occurrence: None)
  Receive Date: 20110810
  Receipt Date: 20110804
  Transmission Date: 20111222
  Serious: Yes (Hospitalization)
  Sender: FDA-Public Use
  Company Number: US-GLAXOSMITHKLINE-A0937320A

PATIENT
  Age: 41 Year
  Sex: Female
  Weight: 77.3 kg

DRUGS (32)
  1. ZOFRAN [Suspect]
     Indication: NAUSEA
     Dosage: 8MG SEE DOSAGE TEXT
     Route: 042
     Dates: start: 20110606, end: 20110607
  2. PAIN MEDICATION [Suspect]
  3. ALUMINUM [Concomitant]
     Route: 048
  4. WELLBUTRIN [Concomitant]
     Indication: DEPRESSION
     Dosage: 100MG PER DAY
     Route: 048
     Dates: start: 20101001
  5. SINGULAIR [Concomitant]
     Indication: MULTIPLE ALLERGIES
     Dosage: 10MG PER DAY
     Route: 048
     Dates: start: 20100623
  6. PREVACID [Concomitant]
     Indication: GASTROOESOPHAGEAL REFLUX DISEASE
     Route: 048
     Dates: start: 20100101
  7. NASONEX [Concomitant]
     Indication: MULTIPLE ALLERGIES
     Route: 045
     Dates: start: 20100324
  8. UNKNOWN [Concomitant]
  9. UNKNOWN [Concomitant]
  10. TYLENOL-500 [Concomitant]
     Indication: PAIN
     Dosage: 500MG AS REQUIRED
     Route: 048
  11. LORAZEPAM [Concomitant]
     Indication: ANXIETY
     Dosage: .5MG AS REQUIRED
     Dates: start: 20110317
  12. VISTARIL [Concomitant]
     Dosage: 25MG PER DAY
  13. SIMETHICON [Concomitant]
     Route: 048
  14. ZYRTEC [Concomitant]
     Indication: ANTIALLERGIC THERAPY
     Dosage: 10MG PER DAY
     Route: 048
  15. PHENERGAN HCL [Concomitant]
     Indication: NAUSEA
     Dosage: 25MG AS REQUIRED
     Route: 048
  16. MAXALT [Concomitant]
     Indication: MIGRAINE
     Route: 048
  17. DANAZOL [Concomitant]
     Dosage: 200MG TWICE PER DAY
     Route: 048
     Dates: start: 20000210
  18. MAGNESIUM [Concomitant]
     Route: 048
  19. ASTEPRO [Concomitant]
     Route: 045
     Dates: start: 20101118
  20. RELPAX [Concomitant]
     Indication: MIGRAINE
     Route: 048
     Dates: start: 20070101
  21. FLOVENT [Concomitant]
     Route: 055
  22. RANITIDINE [Concomitant]
     Dosage: 300MG TWO TIMES PER WEEK
     Route: 048
     Dates: start: 20100701
  23. VICODIN [Concomitant]
     Indication: PAIN
     Route: 048
     Dates: start: 20100329
  24. MAXAIR [Concomitant]
     Indication: ASTHMA
     Route: 055
     Dates: start: 20100701
  25. PROTONIX [Concomitant]
     Indication: GASTROOESOPHAGEAL REFLUX DISEASE
     Route: 048
  26. DILAUDID [Suspect]
     Indication: PAIN
     Dosage: 1MG SEE DOSAGE TEXT
     Route: 042
     Dates: start: 20110606, end: 20110607
  27. ZOFRAN [Suspect]
  28. TOPAMAX [Concomitant]
     Indication: MIGRAINE
     Dosage: 50MG TWICE PER DAY
     Route: 048
     Dates: start: 20080101
  29. LIDODERM [Concomitant]
     Indication: BACK PAIN
     Route: 062
     Dates: start: 20100330
  30. SENOKOT [Concomitant]
     Indication: DIARRHOEA
     Route: 048
  31. ALVESCO [Concomitant]
     Indication: ASTHMA
     Route: 055
  32. ALLEGRA [Concomitant]
     Dates: start: 20100720

REACTIONS (4)
  - HEADACHE [None]
  - VOMITING [None]
  - MIGRAINE [None]
  - DEHYDRATION [None]
